FAERS Safety Report 7861698-9 (Version None)
Quarter: 2011Q4

REPORT INFORMATION
  Report Type: 
  Country: None (occurrence: None)
  Receive Date: 20111027
  Receipt Date: 20110928
  Transmission Date: 20120403
  Serious: Yes (Other)
  Sender: FDA-Public Use
  Company Number: JP-ROCHE-1001733

PATIENT
  Age: 79 Year
  Sex: Male

DRUGS (4)
  1. XELODA [Suspect]
     Indication: LARGE INTESTINE CARCINOMA
     Dosage: UNCERTAIN DOSAGE AND MULTIPLE DOSE
     Route: 048
  2. OXALIPLATIN [Suspect]
     Indication: LARGE INTESTINE CARCINOMA
     Dosage: UNCERTAIN DOSAGE AND MULTIPLE DOSE
     Route: 041
  3. DECADRON [Concomitant]
     Indication: PREMEDICATION
     Dosage: DOSAGE IS UNCERTAIN.
     Route: 065
  4. AVASTIN [Suspect]
     Indication: LARGE INTESTINE CARCINOMA
     Dosage: UNCERTAIN DOSAGE AND MULTIPLE DOSE
     Route: 041

REACTIONS (3)
  - INFUSION RELATED REACTION [None]
  - ASTHMA [None]
  - OBSTRUCTIVE AIRWAYS DISORDER [None]
